FAERS Safety Report 5276520-7 (Version None)
Quarter: 2007Q1

REPORT INFORMATION
  Report Type: 
  Country: None (occurrence: None)
  Receive Date: 20061213
  Receipt Date: 20031010
  Transmission Date: 20070707
  Serious: No
  Sender: FDA-Public Use
  Company Number: 2003UW13142

PATIENT

DRUGS (1)
  1. SEROQUEL [Suspect]
     Dosage: 25 MG ONCE PO
     Route: 048

REACTIONS (3)
  - CHEST DISCOMFORT [None]
  - FEELING ABNORMAL [None]
  - NEUROLEPTIC MALIGNANT SYNDROME [None]
